FAERS Safety Report 7431130-8 (Version None)
Quarter: 2011Q2

REPORT INFORMATION
  Report Type: 
  Country: None (occurrence: None)
  Receive Date: 20110421
  Receipt Date: 20110407
  Transmission Date: 20111010
  Serious: Yes (Hospitalization)
  Sender: FDA-Public Use
  Company Number: NO-BAYER-201035557GPV

PATIENT
  Age: 40 Year
  Sex: Female
  Weight: 87 kg

DRUGS (7)
  1. DALTEPARIN [Suspect]
     Indication: EMBOLISM ARTERIAL
  2. CITALOPRAM [Suspect]
     Indication: PRODUCT USED FOR UNKNOWN INDICATION
     Route: 048
  3. LAMOTRIGINE [Suspect]
     Indication: PRODUCT USED FOR UNKNOWN INDICATION
     Route: 048
  4. DALTEPARIN [Suspect]
     Indication: SUICIDE ATTEMPT
     Dosage: 7500 IU (DAILY DOSE), ,
  5. DALTEPARIN [Suspect]
     Dosage: 212500 UNIT CUMULATIVE DOSE
     Route: 058
  6. ASPIRIN [Suspect]
     Indication: EMBOLISM ARTERIAL
     Route: 048
  7. PROMETHAZINE [Suspect]
     Indication: PRODUCT USED FOR UNKNOWN INDICATION
     Route: 048

REACTIONS (3)
  - POISONING DELIBERATE [None]
  - SOMNOLENCE [None]
  - ACTIVATED PARTIAL THROMBOPLASTIN TIME PROLONGED [None]
